FAERS Safety Report 20963426 (Version 2)
Quarter: 2022Q3

REPORT INFORMATION
  Report Type: Spontaneous
  Country: JP (occurrence: JP)
  Receive Date: 20220615
  Receipt Date: 20220702
  Transmission Date: 20221027
  Serious: Yes (Hospitalization)
  Sender: FDA-Public Use
  Company Number: JP-TEVA-2022-JP-2045579

PATIENT
  Age: 69 Year
  Sex: Female

DRUGS (5)
  1. DIAZEPAM [Interacting]
     Active Substance: DIAZEPAM
     Indication: Anxiety
     Route: 048
  2. GEFITINIB [Interacting]
     Active Substance: GEFITINIB
     Indication: Lung adenocarcinoma stage IV
     Dosage: 1500 MILLIGRAM DAILY;
     Route: 048
  3. GEFITINIB [Interacting]
     Active Substance: GEFITINIB
     Indication: Suicide attempt
  4. GEFITINIB [Interacting]
     Active Substance: GEFITINIB
     Indication: Intentional overdose
  5. GEFITINIB [Interacting]
     Active Substance: GEFITINIB
     Indication: EGFR gene mutation

REACTIONS (12)
  - Rhabdomyolysis [Recovered/Resolved]
  - Nausea [Recovered/Resolved]
  - Vomiting [Recovered/Resolved]
  - Diarrhoea [Recovered/Resolved]
  - Haemoptysis [Recovered/Resolved]
  - Tachycardia [Recovered/Resolved]
  - Tachypnoea [Recovered/Resolved]
  - Hypertension [Recovered/Resolved]
  - Renal impairment [Recovered/Resolved]
  - Intentional overdose [Unknown]
  - Toxicity to various agents [Unknown]
  - Drug interaction [Unknown]
